FAERS Safety Report 5474720-4 (Version None)
Quarter: 2007Q3

REPORT INFORMATION
  Report Type: 
  Country: None (occurrence: None)
  Receive Date: 20070928
  Receipt Date: 20070914
  Transmission Date: 20080115
  Serious: Yes (Hospitalization)
  Sender: FDA-Public Use
  Company Number: 161557ISR

PATIENT
  Age: 69 Year
  Sex: Male

DRUGS (7)
  1. CISPLATIN [Suspect]
     Dosage: 80 MG (ON DAY 1-21 DAY CYCLE) INTRAVENOUS
     Route: 042
     Dates: start: 20070807
  2. IRINOTECAN HCL [Suspect]
     Dosage: 80 MG (ON DAYS - 1 AND 8 OF 21-DAY CYCLE) INTRAVENOUS
     Route: 042
     Dates: start: 20070807
  3. ESOMEPRAZOLE MAGNESIUM [Concomitant]
  4. FUROSEMIDE [Concomitant]
  5. FLAVOXATE HCL [Concomitant]
  6. ALL OTHER THERAPEUTIC PRODUCTS [Concomitant]
  7. SERETIDE [Concomitant]

REACTIONS (1)
  - URINARY TRACT INFECTION [None]
